FAERS Safety Report 5085562-6 (Version None)
Quarter: 2006Q3

REPORT INFORMATION
  Report Type: 
  Country: None (occurrence: None)
  Receive Date: 20060731
  Receipt Date: 20060320
  Transmission Date: 20061208
  Serious: Yes (Other)
  Sender: FDA-Public Use
  Company Number: 200513003BWH

PATIENT
  Age: 40 Year
  Sex: Male
  Weight: 110.6777 kg

DRUGS (30)
  1. AVELOX [Suspect]
     Indication: SINUSITIS
     Dosage: 400 MG, QD, ORAL
     Route: 048
     Dates: start: 20051207, end: 20051209
  2. NAPROXEN SODIUM [Suspect]
     Indication: DRUG USE FOR UNKNOWN INDICATION
     Dates: start: 19980101
  3. SYNTHROID [Concomitant]
  4. AZULFIDINE [Concomitant]
  5. ZETIA [Concomitant]
  6. ZYRTEC [Concomitant]
  7. HUMALOG [Concomitant]
  8. LISINOPRIL [Concomitant]
  9. SINGULAIR [Concomitant]
  10. XOPENEX [Concomitant]
  11. PULMICORT [Concomitant]
  12. PULMICORT [Concomitant]
  13. ATROVENT [Concomitant]
  14. IPRATROPIUM BROMIDE [Concomitant]
  15. FORADIL [Concomitant]
  16. NPH INSULIN [Concomitant]
  17. PREDNISONE [Concomitant]
  18. ZITHROMAX [Concomitant]
  19. CITRUCEL [Concomitant]
  20. SOLOTRON MULTIVITAMIN SUPPLEMENT [Concomitant]
  21. PENLAC [Concomitant]
  22. LANTUS [Concomitant]
  23. ACIPHEX [Concomitant]
  24. FLU-SHOT [Concomitant]
  25. MUCINEX [Concomitant]
  26. HYDROCODONE [Concomitant]
  27. NASAL SALINE [Concomitant]
  28. NASONEX [Concomitant]
  29. PERCOCET [Concomitant]
  30. DEPO-TESTOSTERONE [Concomitant]

REACTIONS (6)
  - ASTHENIA [None]
  - BLOOD PRESSURE INCREASED [None]
  - HEADACHE [None]
  - HEART RATE INCREASED [None]
  - THIRST [None]
  - WHEEZING [None]
